FAERS Safety Report 7158224-9 (Version None)
Quarter: 2010Q4

REPORT INFORMATION
  Report Type: 
  Country: None (occurrence: None)
  Receive Date: 20101214
  Receipt Date: 20100325
  Transmission Date: 20110411
  Serious: No
  Sender: FDA-Public Use
  Company Number: US-ASTRAZENECA-2010SE13362

PATIENT
  Age: 70 Year
  Sex: Female
  Weight: 99.8 kg

DRUGS (7)
  1. CRESTOR [Suspect]
     Route: 048
     Dates: start: 20091201
  2. CRESTOR [Suspect]
     Route: 048
     Dates: start: 20100318
  3. LANTUS [Concomitant]
  4. LISINOPRIL [Concomitant]
  5. DIAZIDE [Concomitant]
  6. PRILOSEC [Concomitant]
  7. CITRUCEL [Concomitant]

REACTIONS (5)
  - AMNESIA [None]
  - BLOOD GLUCOSE INCREASED [None]
  - HEADACHE [None]
  - MUSCLE SPASMS [None]
  - TREMOR [None]
